FAERS Safety Report 4594762-0 (Version None)
Quarter: 2005Q1

REPORT INFORMATION
  Report Type: 
  Country: None (occurrence: None)
  Receive Date: 20050223
  Receipt Date: 20050211
  Transmission Date: 20050727
  Serious: Yes (Death)
  Sender: FDA-Public Use
  Company Number: ALMO2005004

PATIENT
  Sex: Female
  Weight: 89.8122 kg

DRUGS (2)
  1. AXERT [Suspect]
     Indication: MIGRAINE
  2. RELPAX [Concomitant]

REACTIONS (1)
  - DEATH [None]
